FAERS Safety Report 6016617-7 (Version None)
Quarter: 2008Q4

REPORT INFORMATION
  Report Type: 
  Country: None (occurrence: None)
  Receive Date: 20081222
  Receipt Date: 20081212
  Transmission Date: 20090506
  Serious: Yes (Other)
  Sender: FDA-Public Use
  Company Number: PHHY2008BR31916

PATIENT
  Age: 58 Year
  Sex: Female
  Weight: 85 kg

DRUGS (3)
  1. EXFORGE [Suspect]
     Indication: HYPERTENSION
     Dosage: 1 DF, QD
     Route: 048
     Dates: start: 20081127
  2. VALIUM [Concomitant]
     Indication: ANXIETY
     Dosage: 10 MG, PRN
     Route: 048
  3. VALIUM [Concomitant]
     Dosage: USED FOR 3 TIMES
     Route: 048
     Dates: start: 20081127, end: 20081212

REACTIONS (6)
  - ARTHRALGIA [None]
  - BLOOD PRESSURE INCREASED [None]
  - CONDITION AGGRAVATED [None]
  - ERYTHEMA [None]
  - FATIGUE [None]
  - OEDEMA PERIPHERAL [None]
